FAERS Safety Report 6196311-2 (Version None)
Quarter: 2009Q2

REPORT INFORMATION
  Report Type: 
  Country: None (occurrence: None)
  Receive Date: 20090520
  Receipt Date: 20090514
  Transmission Date: 20091009
  Serious: Yes (Other)
  Sender: FDA-Public Use
  Company Number: US-PFIZER INC-2006052966

PATIENT
  Sex: Female
  Weight: 73 kg

DRUGS (8)
  1. PROVERA [Suspect]
     Indication: HORMONE REPLACEMENT THERAPY
     Dosage: 2.5 MG, UNK
     Route: 048
     Dates: start: 19910823, end: 19980111
  2. PROVERA [Suspect]
     Indication: MENOPAUSE
  3. PREMARIN [Suspect]
     Indication: HORMONE REPLACEMENT THERAPY
     Dosage: 0.625 MG, UNK
     Route: 065
     Dates: start: 19910823, end: 19921012
  4. PREMARIN [Suspect]
     Indication: MENOPAUSE
     Dosage: 0.9 MG, UNK
     Dates: start: 19921012, end: 19980111
  5. PREMPRO [Suspect]
     Indication: HORMONE REPLACEMENT THERAPY
     Dosage: 2.5/0.625 MG
     Dates: start: 19980111, end: 20010615
  6. PREMPRO [Suspect]
     Indication: MENOPAUSE
  7. AMOXICILLIN [Concomitant]
     Dosage: UNK
  8. VYTORIN [Concomitant]
     Indication: BLOOD CHOLESTEROL
     Dosage: UNK
     Dates: start: 20000101, end: 20060301

REACTIONS (1)
  - BREAST CANCER [None]
